FAERS Safety Report 13260980 (Version 1)
Quarter: 2017Q1

REPORT INFORMATION
  Report Type: Report from Study
  Country: CA (occurrence: CA)
  Receive Date: 20170222
  Receipt Date: 20170222
  Transmission Date: 20170428
  Serious: Yes (Hospitalization, Other)
  Sender: FDA-Public Use
  Company Number: CA-REGENERON PHARMACEUTICALS, INC.-2017-12017

PATIENT

DRUGS (1)
  1. EYLEA [Suspect]
     Active Substance: AFLIBERCEPT
     Indication: NEOVASCULAR AGE-RELATED MACULAR DEGENERATION
     Dosage: UNK
     Route: 031
     Dates: start: 20170123

REACTIONS (7)
  - Vitreous floaters [Not Recovered/Not Resolved]
  - Visual impairment [Not Recovered/Not Resolved]
  - Headache [Unknown]
  - Eye injury [Not Recovered/Not Resolved]
  - Eye laser surgery [Unknown]
  - Vision blurred [Not Recovered/Not Resolved]
  - Injection site injury [Unknown]

NARRATIVE: CASE EVENT DATE: 2017
